FAERS Safety Report 5420539-X (Version None)
Quarter: 2007Q3

REPORT INFORMATION
  Report Type: 
  Country: None (occurrence: None)
  Receive Date: 20070821
  Receipt Date: 20070605
  Transmission Date: 20080115
  Serious: No
  Sender: FDA-Public Use
  Company Number: US-KINGPHARMUSA00001-K200700690

PATIENT

DRUGS (2)
  1. CYTOMEL [Suspect]
     Indication: THYROIDECTOMY
     Dosage: 25 MCG, QD
     Route: 048
  2. THYROID TAB [Concomitant]
     Indication: THYROIDECTOMY

REACTIONS (2)
  - DRUG INEFFECTIVE [None]
  - THYROID FUNCTION TEST ABNORMAL [None]
